FAERS Safety Report 9357380 (Version 1)
Quarter: 2013Q2

REPORT INFORMATION
  Report Type: Spontaneous
  Country: IN (occurrence: IN)
  Receive Date: 20130620
  Receipt Date: 20130620
  Transmission Date: 20140414
  Serious: Yes (Hospitalization, Other)
  Sender: FDA-Public Use
  Company Number: IN-MERCK-1306IND007712

PATIENT
  Age: 37 Year
  Sex: Male

DRUGS (1)
  1. JANUVIA [Suspect]
     Dosage: 50 MG, QD
     Route: 048
     Dates: end: 201306

REACTIONS (3)
  - Coma [Recovered/Resolved]
  - Speech disorder [Recovered/Resolved]
  - Blood glucose decreased [Recovered/Resolved]
